FAERS Safety Report 25750231 (Version 1)
Quarter: 2025Q3

REPORT INFORMATION
  Report Type: Spontaneous
  Country: US (occurrence: US)
  Receive Date: 20250902
  Receipt Date: 20250902
  Transmission Date: 20251020
  Serious: Yes (Hospitalization)
  Sender: MYLAN
  Company Number: US-MYLANLABS-2025M1073613

PATIENT
  Age: 1 Day
  Sex: Female

DRUGS (4)
  1. ALPROSTADIL [Suspect]
     Active Substance: ALPROSTADIL
     Indication: Patent ductus arteriosus
  2. ALPROSTADIL [Suspect]
     Active Substance: ALPROSTADIL
     Route: 065
  3. ALPROSTADIL [Suspect]
     Active Substance: ALPROSTADIL
     Route: 065
  4. ALPROSTADIL [Suspect]
     Active Substance: ALPROSTADIL

REACTIONS (3)
  - Neonatal hypoxia [Unknown]
  - Apnoea [Unknown]
  - Off label use [Unknown]
